FAERS Safety Report 16329912 (Version 11)
Quarter: 2021Q3

REPORT INFORMATION
  Report Type: Spontaneous
  Country: US (occurrence: US)
  Receive Date: 20190520
  Receipt Date: 20210927
  Transmission Date: 20211014
  Serious: Yes (Hospitalization, Other)
  Sender: FDA-Public Use
  Company Number: US-GLAXOSMITHKLINE-US2019AMR085415

PATIENT
  Age: 77 Year
  Sex: Female

DRUGS (6)
  1. ANORO ELLIPTA [Suspect]
     Active Substance: UMECLIDINIUM BROMIDE\VILANTEROL TRIFENATATE
  2. ANORO ELLIPTA [Suspect]
     Active Substance: UMECLIDINIUM BROMIDE\VILANTEROL TRIFENATATE
     Indication: PRODUCT USED FOR UNKNOWN INDICATION
     Dosage: UNK
     Route: 065
     Dates: start: 2017
  3. VENTOLIN [Suspect]
     Active Substance: ALBUTEROL SULFATE
  4. ANORO ELLIPTA [Suspect]
     Active Substance: UMECLIDINIUM BROMIDE\VILANTEROL TRIFENATATE
     Indication: PRODUCT USED FOR UNKNOWN INDICATION
     Dosage: UNK, 62.5/25 MCG
     Route: 055
     Dates: start: 201701
  5. VENTOLIN HFA [Suspect]
     Active Substance: ALBUTEROL SULFATE
     Indication: PRODUCT USED FOR UNKNOWN INDICATION
     Dosage: UNK
     Route: 055
     Dates: start: 2017
  6. VENTOLIN [Suspect]
     Active Substance: ALBUTEROL SULFATE
     Indication: PRODUCT USED FOR UNKNOWN INDICATION
     Dosage: UNK
     Route: 065
     Dates: start: 2017

REACTIONS (37)
  - Pneumonia [Unknown]
  - Optic nerve injury [Unknown]
  - Arthralgia [Unknown]
  - Brain oedema [Unknown]
  - Hip fracture [Unknown]
  - Pain in extremity [Unknown]
  - Brain injury [Unknown]
  - Eye infection [Unknown]
  - Road traffic accident [Unknown]
  - Spinal pain [Unknown]
  - Lung disorder [Unknown]
  - Sjogren^s syndrome [Unknown]
  - Oxygen saturation decreased [Unknown]
  - Neck pain [Unknown]
  - Eye swelling [Unknown]
  - Visual impairment [Unknown]
  - Candida infection [Not Recovered/Not Resolved]
  - Neuralgia [Unknown]
  - Coma [Unknown]
  - Fungal infection [Unknown]
  - Malaise [Unknown]
  - Product dose omission issue [Unknown]
  - Eye swelling [Unknown]
  - Blindness [Unknown]
  - Bronchial obstruction [Unknown]
  - Spinal fracture [Unknown]
  - Staphylococcal infection [Unknown]
  - Infection [Unknown]
  - Head injury [Unknown]
  - Dyspnoea [Unknown]
  - Respiratory moniliasis [Unknown]
  - Neoplasm malignant [Unknown]
  - Bronchoscopy [Unknown]
  - Chronic obstructive pulmonary disease [Unknown]
  - Nerve injury [Unknown]
  - Limb discomfort [Unknown]
  - Ill-defined disorder [Unknown]

NARRATIVE: CASE EVENT DATE: 2017
